FAERS Safety Report 7503962-9 (Version None)
Quarter: 2011Q2

REPORT INFORMATION
  Report Type: 
  Country: None (occurrence: None)
  Receive Date: 20110524
  Receipt Date: 20110524
  Transmission Date: 20111010
  Serious: Yes (Life-Threatening)
  Sender: FDA-Public Use
  Company Number: None

PATIENT
  Sex: Male
  Weight: 84.8226 kg

DRUGS (1)
  1. SUBOXONE [Suspect]
     Indication: DRUG DEPENDENCE
     Dosage: 8MG 5MG ROUTINE TWICE DAILY
     Dates: start: 20080101, end: 20110101

REACTIONS (7)
  - HYPOAESTHESIA [None]
  - DRUG DEPENDENCE [None]
  - ANAPHYLACTIC SHOCK [None]
  - OVERDOSE [None]
  - TRANSIENT ISCHAEMIC ATTACK [None]
  - BRONCHOSPASM [None]
  - INCORRECT DRUG ADMINISTRATION DURATION [None]
